FAERS Safety Report 14740211 (Version 2)
Quarter: 2019Q1

REPORT INFORMATION
  Report Type: Spontaneous
  Country: US (occurrence: US)
  Receive Date: 20180410
  Receipt Date: 20190221
  Transmission Date: 20190417
  Serious: No
  Sender: FDA-Public Use
  Company Number: US-PFIZER INC-2018141784

PATIENT
  Age: 54 Year
  Sex: Female

DRUGS (3)
  1. LETROZOLE. [Concomitant]
     Active Substance: LETROZOLE
     Dosage: 2.5 MG, UNK
     Dates: end: 201901
  2. IBRANCE [Suspect]
     Active Substance: PALBOCICLIB
     Indication: BREAST CANCER FEMALE
     Dosage: 125 MG, CYCLIC (1 CAPSULE BY MOUTH ON DAY 1-21 THEN 7 DAYS OFF WITH FOOD, AVOID GRAPE FRUIT)
     Route: 048
     Dates: end: 201901
  3. XGEVA [Suspect]
     Active Substance: DENOSUMAB
     Dosage: UNK (EVERY 28 DAYS)

REACTIONS (2)
  - Fatigue [Unknown]
  - Influenza like illness [Unknown]
